FAERS Safety Report 8150661-9 (Version None)
Quarter: 2012Q1

REPORT INFORMATION
  Report Type: 
  Country: None (occurrence: None)
  Receive Date: 20120220
  Receipt Date: 20120206
  Transmission Date: 20120608
  Serious: Yes (Hospitalization)
  Sender: FDA-Public Use
  Company Number: PHHY2010CA84421

PATIENT
  Sex: Male

DRUGS (1)
  1. CLOZARIL [Suspect]
     Indication: SCHIZOPHRENIA
     Route: 048
     Dates: start: 19911015

REACTIONS (6)
  - CONFUSIONAL STATE [None]
  - FALL [None]
  - LETHARGY [None]
  - ANKLE FRACTURE [None]
  - DISORIENTATION [None]
  - ANTIPSYCHOTIC DRUG LEVEL INCREASED [None]
